FAERS Safety Report 23948616 (Version 2)
Quarter: 2024Q3

REPORT INFORMATION
  Report Type: Spontaneous
  Country: US (occurrence: US)
  Receive Date: 20240607
  Receipt Date: 20240731
  Transmission Date: 20241017
  Serious: Yes (Hospitalization)
  Sender: PROCTER AND GAMBLE
  Company Number: US-PROCTER+GAMBLE-PH24004448

PATIENT
  Age: 80 Year
  Sex: Female

DRUGS (12)
  1. VICKS ZZZQUIL NIGHTTIME SLEEP-AID [Interacting]
     Active Substance: DIPHENHYDRAMINE HYDROCHLORIDE
     Indication: Insomnia
     Dosage: 2 LIQCAP, 1 /DAY
     Route: 048
  2. VICKS ZZZQUIL NIGHTTIME SLEEP-AID [Interacting]
     Active Substance: DIPHENHYDRAMINE HYDROCHLORIDE
     Dosage: 2 LIQCAP (BETWEEN 1 AND 2 LIQUICAPS), 1 /DAY (ONCE AT NIGHT)
     Route: 048
     Dates: start: 20240407, end: 2024
  3. VICKS ZZZQUIL NIGHTTIME SLEEP-AID [Interacting]
     Active Substance: DIPHENHYDRAMINE HYDROCHLORIDE
     Dosage: 1 LIQCAP (BETWEEN 1 AND 2 LIQUICAPS), 1 /DAY (ONCE AT NIGHT)
     Route: 048
     Dates: start: 2024, end: 2024
  4. VICKS ZZZQUIL NIGHTTIME SLEEP-AID [Interacting]
     Active Substance: DIPHENHYDRAMINE HYDROCHLORIDE
     Dosage: 2 LIQCAP (BETWEEN 1 AND 2 LIQUICAPS), 1 /DAY (ONCE AT NIGHT)
     Route: 048
     Dates: start: 2024, end: 20240521
  5. UNSPECIFIED INGREDIENT [Interacting]
     Active Substance: UNSPECIFIED INGREDIENT
  6. ATENOLOL [Concomitant]
     Active Substance: ATENOLOL
     Indication: Hypertension
     Dosage: UNK
  7. ATENOLOL [Concomitant]
     Active Substance: ATENOLOL
     Dosage: BACK ON A LOW DOSE ONE
  8. PAXIL [Concomitant]
     Active Substance: PAROXETINE HYDROCHLORIDE
  9. ASPIRIN [Concomitant]
     Active Substance: ASPIRIN
     Indication: Prophylaxis
     Dosage: UNK, TAKEN FOR MANY YEARS
  10. POTASSIUM [Concomitant]
     Active Substance: POTASSIUM
     Dosage: UNK
  11. VITAMIN B12 [Concomitant]
     Active Substance: CYANOCOBALAMIN
     Indication: Feeling of relaxation
  12. VITAMIN D3 [Concomitant]
     Active Substance: CHOLECALCIFEROL
     Dosage: UNK

REACTIONS (18)
  - Hypertension [Recovering/Resolving]
  - Flatulence [Not Recovered/Not Resolved]
  - Dizziness [Recovering/Resolving]
  - Depressed level of consciousness [Unknown]
  - Tremor [Recovering/Resolving]
  - Nausea [Recovering/Resolving]
  - Decreased appetite [Not Recovered/Not Resolved]
  - Abdominal distension [Unknown]
  - Dysphagia [Unknown]
  - Underdose [Unknown]
  - Gastrointestinal disorder [Unknown]
  - Red blood cell count decreased [Unknown]
  - Eructation [Unknown]
  - Crying [Recovering/Resolving]
  - Anxiety [Recovering/Resolving]
  - Drug interaction [Unknown]
  - Dizziness postural [Unknown]
  - Incorrect product administration duration [Unknown]

NARRATIVE: CASE EVENT DATE: 20240101
